FAERS Safety Report 13367384 (Version 1)
Quarter: 2017Q1

REPORT INFORMATION
  Report Type: Spontaneous
  Country: US (occurrence: US)
  Receive Date: 20170324
  Receipt Date: 20170324
  Transmission Date: 20170429
  Serious: Yes (Hospitalization)
  Sender: FDA-Public Use
  Company Number: US-STRIDES ARCOLAB LIMITED-2017SP005142

PATIENT

DRUGS (2)
  1. MYCOPHENOLATE MOFETIL. [Suspect]
     Active Substance: MYCOPHENOLATE MOFETIL
     Indication: GLOMERULONEPHRITIS MEMBRANOUS
     Dosage: UNK UNK, UNKNOWN
     Route: 065
  2. CORTICOSTEROIDS [Suspect]
     Active Substance: CORTICOSTEROID NOS
     Indication: GLOMERULONEPHRITIS MEMBRANOUS
     Dosage: UNK

REACTIONS (23)
  - Mental status changes [Unknown]
  - Haemorrhagic diathesis [Unknown]
  - Hypoglycaemia [Unknown]
  - Herpes simplex [Unknown]
  - Brain death [None]
  - Hepatomegaly [Unknown]
  - Tachypnoea [Unknown]
  - Renal failure [Unknown]
  - Influenza like illness [Unknown]
  - Rash [Unknown]
  - Off label use [Unknown]
  - Tachycardia [Unknown]
  - Multiple organ dysfunction syndrome [Unknown]
  - Coma [Unknown]
  - Acute hepatic failure [Unknown]
  - Hepatitis acute [Unknown]
  - Hypothermia [Unknown]
  - Abdominal pain upper [Unknown]
  - Hypoxia [Unknown]
  - Hypotension [Unknown]
  - Penile ulceration [Unknown]
  - Encephalopathy [Unknown]
  - Abdominal distension [Unknown]
